FAERS Safety Report 16927967 (Version 1)
Quarter: 2019Q4

REPORT INFORMATION
  Report Type: Report from Study
  Country: None (occurrence: US)
  Receive Date: 20191017
  Receipt Date: 20191017
  Transmission Date: 20200122
  Serious: Yes (Other)
  Sender: FDA-Public Use
  Company Number: US-ABBVIE-19K-163-2964470-00

PATIENT
  Age: 29 Year
  Sex: Female
  Weight: 46.76 kg

DRUGS (2)
  1. HUMIRA [Suspect]
     Active Substance: ADALIMUMAB
     Indication: PSORIASIS
     Route: 058
     Dates: start: 201905, end: 201907
  2. HUMIRA [Suspect]
     Active Substance: ADALIMUMAB
     Route: 058
     Dates: start: 201909

REACTIONS (7)
  - Blood bilirubin increased [Recovering/Resolving]
  - Weight decreased [Not Recovered/Not Resolved]
  - Wrong technique in product usage process [Recovered/Resolved]
  - Tooth infection [Recovered/Resolved]
  - Localised infection [Recovered/Resolved]
  - Blood thyroid stimulating hormone increased [Unknown]
  - Dental caries [Recovered/Resolved]

NARRATIVE: CASE EVENT DATE: 201905
